FAERS Safety Report 16431029 (Version 1)
Quarter: 2019Q2

REPORT INFORMATION
  Report Type: Spontaneous
  Country: JP (occurrence: JP)
  Receive Date: 20190614
  Receipt Date: 20190614
  Transmission Date: 20190711
  Serious: Yes (Other)
  Sender: FDA-Public Use
  Company Number: PHJP2019JP006513

PATIENT
  Age: 71 Year
  Sex: Male

DRUGS (5)
  1. PAZOPANIB [Suspect]
     Active Substance: PAZOPANIB
     Dosage: 400 MG, UNK
     Route: 048
  2. PAZOPANIB [Suspect]
     Active Substance: PAZOPANIB
     Dosage: 200 MG, UNK
     Route: 048
  3. PAZOPANIB [Suspect]
     Active Substance: PAZOPANIB
     Dosage: 200 MG, UNK
     Route: 048
  4. PAZOPANIB [Suspect]
     Active Substance: PAZOPANIB
     Dosage: 400 MG, UNK
     Route: 048
  5. PAZOPANIB [Suspect]
     Active Substance: PAZOPANIB
     Indication: RENAL CANCER METASTATIC
     Dosage: 400 MG, UNK
     Route: 048

REACTIONS (6)
  - Renal impairment [Unknown]
  - Blood pressure increased [Unknown]
  - Gastric ulcer [Unknown]
  - Vomiting [Unknown]
  - Faeces discoloured [Unknown]
  - Haematemesis [Unknown]
